FAERS Safety Report 7582889-0 (Version None)
Quarter: 2011Q2

REPORT INFORMATION
  Report Type: 
  Country: None (occurrence: None)
  Receive Date: 20110630
  Receipt Date: 20110617
  Transmission Date: 20111010
  Serious: Yes (Hospitalization, Other)
  Sender: FDA-Public Use
  Company Number: US-AMGEN-USASP2011031111

PATIENT
  Age: 60 Year
  Sex: Female

DRUGS (2)
  1. ENBREL [Suspect]
     Dates: start: 20110101
  2. ENBREL [Suspect]
     Indication: RHEUMATOID ARTHRITIS
     Dosage: 50 MG, QWK
     Dates: start: 20110301

REACTIONS (8)
  - LOCALISED INFECTION [None]
  - FALL [None]
  - INCISIONAL DRAINAGE [None]
  - INCISION SITE HAEMORRHAGE [None]
  - ARTHRALGIA [None]
  - RHEUMATOID ARTHRITIS [None]
  - MUSCLE INJURY [None]
  - PAIN [None]
